FAERS Safety Report 8816664 (Version 1)
Quarter: 2012Q4

REPORT INFORMATION
  Report Type: Spontaneous
  Country: US (occurrence: None)
  Receive Date: 20120928
  Receipt Date: 20120928
  Transmission Date: 20130627
  Serious: Yes (Hospitalization, Other)
  Sender: FDA-Public Use
  Company Number: 2012P1059662

PATIENT
  Age: 59 Year
  Sex: Female

DRUGS (11)
  1. LORAZEPAM [Suspect]
  2. LORAZEPAM [Suspect]
  3. CITALOPRAM [Concomitant]
  4. IMIPRAMINE [Concomitant]
  5. TRIFLUOPERAZINE [Concomitant]
  6. DIGOXIN [Concomitant]
  7. FUROSEMIDE [Concomitant]
  8. METFORMIN [Concomitant]
  9. MULTIVITAMIN [Concomitant]
  10. NIACIN [Concomitant]
  11. POTASSIUM CHLORIDE [Concomitant]

REACTIONS (10)
  - Aortic stenosis [None]
  - Catatonia [None]
  - Post procedural complication [None]
  - Mutism [None]
  - Immobile [None]
  - Tachycardia [None]
  - Disorientation [None]
  - Pyrexia [None]
  - Anxiety [None]
  - Withdrawal syndrome [None]
